FAERS Safety Report 5045530-7 (Version None)
Quarter: 2006Q3

REPORT INFORMATION
  Report Type: 
  Country: None (occurrence: None)
  Receive Date: 20060707
  Receipt Date: 20060629
  Transmission Date: 20061208
  Serious: Yes (Hospitalization, Disabling, Other)
  Sender: FDA-Public Use
  Company Number: 2006AP03007

PATIENT
  Age: 58 Year
  Sex: Female
  Weight: 61 kg

DRUGS (6)
  1. ARIMIDEX [Suspect]
     Indication: BREAST CANCER
     Route: 048
     Dates: end: 20040810
  2. LOCHOL [Suspect]
     Indication: HYPERCHOLESTEROLAEMIA
     Route: 048
     Dates: start: 20011009, end: 20040216
  3. LOCHOL [Suspect]
     Route: 048
     Dates: start: 20040217
  4. RADIATION [Suspect]
     Indication: BREAST CANCER
     Dates: start: 20040212
  5. THYRADIN S [Concomitant]
  6. GASTER [Concomitant]

REACTIONS (2)
  - BREAST CANCER [None]
  - OBLITERATIVE BRONCHIOLITIS [None]
